FAERS Safety Report 24127678 (Version 6)
Quarter: 2025Q3

REPORT INFORMATION
  Report Type: Report from Study
  Country: CA (occurrence: CA)
  Receive Date: 20240723
  Receipt Date: 20250716
  Transmission Date: 20251021
  Serious: Yes (Other)
  Sender: SANDOZ
  Company Number: CA-SANDOZ-SDZ2024CA039249

PATIENT
  Sex: Female

DRUGS (8)
  1. CORTISONE [Suspect]
     Active Substance: CORTISONE
     Route: 065
  2. CORTISONE [Suspect]
     Active Substance: CORTISONE
     Indication: Product used for unknown indication
     Route: 065
  3. HYRIMOZ [Suspect]
     Active Substance: ADALIMUMAB-ADAZ
     Indication: Crohn^s disease
     Route: 058
  4. HYRIMOZ [Suspect]
     Active Substance: ADALIMUMAB-ADAZ
     Dosage: 40 MG, Q2W (PREFILLED PEN)
     Route: 058
  5. HYRIMOZ [Suspect]
     Active Substance: ADALIMUMAB-ADAZ
     Dosage: 40 MG, Q2W(HYRIMOZ 40 MG SOLUTION FOR INJECTION IN PRE-FILLED PEN)
     Route: 058
     Dates: start: 20240418
  6. HYRIMOZ [Suspect]
     Active Substance: ADALIMUMAB-ADAZ
     Indication: Colitis ulcerative
     Route: 058
  7. HYRIMOZ [Suspect]
     Active Substance: ADALIMUMAB-ADAZ
     Route: 058
  8. LYRICA [Concomitant]
     Active Substance: PREGABALIN
     Indication: Product used for unknown indication
     Route: 065

REACTIONS (34)
  - Colitis ulcerative [Unknown]
  - Surgery [Unknown]
  - Chest discomfort [Unknown]
  - Abdominal discomfort [Unknown]
  - Headache [Unknown]
  - Skin plaque [Unknown]
  - Neck pain [Unknown]
  - Dysarthria [Unknown]
  - Logorrhoea [Unknown]
  - Arthritis [Unknown]
  - Dry mouth [Unknown]
  - Polyp [Unknown]
  - Haemoptysis [Recovering/Resolving]
  - Back pain [Unknown]
  - Insomnia [Unknown]
  - Diarrhoea [Unknown]
  - Constipation [Unknown]
  - Lumbar hernia [Unknown]
  - Spondylolisthesis [Unknown]
  - Arthralgia [Unknown]
  - Peripheral swelling [Unknown]
  - Fatigue [Unknown]
  - Hypoaesthesia [Unknown]
  - Abdominal distension [Unknown]
  - Musculoskeletal stiffness [Unknown]
  - Aortic valve disease [Unknown]
  - Faeces soft [Unknown]
  - Skin hyperpigmentation [Unknown]
  - Vision blurred [Unknown]
  - Head discomfort [Unknown]
  - Swelling face [Unknown]
  - Musculoskeletal stiffness [Unknown]
  - Viral infection [Unknown]
  - Pruritus [Unknown]

NARRATIVE: CASE EVENT DATE: 20240101
